FAERS Safety Report 9845477 (Version 1)
Quarter: 2014Q1

REPORT INFORMATION
  Report Type: Spontaneous
  Country: MX (occurrence: MX)
  Receive Date: 20140127
  Receipt Date: 20140127
  Transmission Date: 20141002
  Serious: Yes (Other)
  Sender: FDA-Public Use
  Company Number: PHHY2014MX008910

PATIENT
  Age: 65 Year
  Sex: Female

DRUGS (1)
  1. ACLASTA [Suspect]
     Indication: OSTEOPOROSIS
     Dosage: 1 APPLICATION (5 MG/100 ML) ANNUAL
     Route: 042

REACTIONS (6)
  - Breast cancer [Unknown]
  - Osteopenia [Unknown]
  - Anaemia [Unknown]
  - Arthropathy [Unknown]
  - Mass [Unknown]
  - Vertigo [Unknown]
